FAERS Safety Report 6212183-1 (Version None)
Quarter: 2009Q2

REPORT INFORMATION
  Report Type: 
  Country: None (occurrence: None)
  Receive Date: 20090602
  Receipt Date: 20090528
  Transmission Date: 20091009
  Serious: Yes (Hospitalization)
  Sender: FDA-Public Use
  Company Number: IT-SANOFI-SYNTHELABO-A06200900271

PATIENT
  Sex: Male

DRUGS (8)
  1. XELODA [Suspect]
     Indication: METASTASES TO LIVER
     Route: 048
     Dates: end: 20090428
  2. XELODA [Suspect]
     Indication: COLON CANCER STAGE IV
     Route: 048
     Dates: end: 20090428
  3. CAMPTOSAR [Suspect]
     Indication: METASTASES TO LIVER
     Route: 042
     Dates: start: 20090111, end: 20090423
  4. CAMPTOSAR [Suspect]
     Indication: COLON CANCER STAGE IV
     Route: 042
     Dates: start: 20090111, end: 20090423
  5. ERBITUX [Suspect]
     Indication: METASTASES TO LIVER
     Route: 042
     Dates: start: 20090111, end: 20090211
  6. ERBITUX [Suspect]
     Indication: COLON CANCER STAGE IV
     Route: 042
     Dates: start: 20090111, end: 20090211
  7. OXALIPLATINO [Suspect]
     Indication: METASTASES TO LIVER
     Route: 041
     Dates: start: 20090424, end: 20090424
  8. OXALIPLATINO [Suspect]
     Indication: COLON CANCER STAGE IV
     Route: 041
     Dates: start: 20090424, end: 20090424

REACTIONS (2)
  - CEREBROVASCULAR ACCIDENT [None]
  - SEPTIC SHOCK [None]
